FAERS Safety Report 23638666 (Version 1)
Quarter: 2024Q1

REPORT INFORMATION
  Report Type: Spontaneous
  Country: CA (occurrence: CA)
  Receive Date: 20240315
  Receipt Date: 20240315
  Transmission Date: 20240410
  Serious: Yes (Life-Threatening, Hospitalization, Other)
  Sender: FDA-Public Use
  Company Number: CA-SUN PHARMACEUTICAL INDUSTRIES LTD-2024R1-436543

PATIENT
  Age: 35 Year
  Sex: Female

DRUGS (8)
  1. FLUTICASONE [Suspect]
     Active Substance: FLUTICASONE
     Indication: Product used for unknown indication
     Dosage: UNK
     Route: 065
  2. MIRTAZAPINE [Suspect]
     Active Substance: MIRTAZAPINE
     Indication: Product used for unknown indication
     Dosage: UNK
     Route: 065
  3. PREDNISONE [Suspect]
     Active Substance: PREDNISONE
     Indication: Product used for unknown indication
     Dosage: UNK
     Route: 065
  4. DUPILUMAB [Suspect]
     Active Substance: DUPILUMAB
     Indication: Product used for unknown indication
     Dosage: UNK
     Route: 065
     Dates: start: 2018
  5. OMALIZUMAB [Suspect]
     Active Substance: OMALIZUMAB
     Indication: Pneumonia
     Dosage: UNK
     Route: 065
     Dates: start: 2009
  6. OMALIZUMAB [Suspect]
     Active Substance: OMALIZUMAB
     Indication: Asthma
  7. VILANTEROL [Suspect]
     Active Substance: VILANTEROL
     Indication: Product used for unknown indication
     Dosage: UNK
     Route: 065
  8. TIOTROPIUM [Suspect]
     Active Substance: TIOTROPIUM
     Indication: Product used for unknown indication
     Dosage: UNK
     Route: 065

REACTIONS (7)
  - Asthma [Unknown]
  - Pulmonary function test decreased [Unknown]
  - Hypoxia [Unknown]
  - Premature delivery [Unknown]
  - Exposure during pregnancy [Unknown]
  - Diabetes mellitus [Unknown]
  - Gestational hypertension [Unknown]
